FAERS Safety Report 19682773 (Version 12)
Quarter: 2021Q3

REPORT INFORMATION
  Report Type: Report from Study
  Country: FR (occurrence: FR)
  Receive Date: 20210810
  Receipt Date: 20210916
  Transmission Date: 20211014
  Serious: Yes (Death, Life-Threatening, Hospitalization)
  Sender: FDA-Public Use
  Company Number: FR-EISAI MEDICAL RESEARCH-EC-2021-097507

PATIENT
  Age: 78 Year
  Sex: Female
  Weight: 41 kg

DRUGS (9)
  1. APIXABAN [Concomitant]
     Active Substance: APIXABAN
     Dates: start: 200801, end: 20210731
  2. LENVATINIB [Suspect]
     Active Substance: LENVATINIB
     Indication: GASTROOESOPHAGEAL CANCER
     Route: 048
     Dates: start: 20210722, end: 20210729
  3. 5?FLUOROURACIL [Suspect]
     Active Substance: FLUOROURACIL
     Dosage: CONTINUOUS
     Route: 041
     Dates: start: 20210722, end: 20210724
  4. 5?FLUOROURACIL [Suspect]
     Active Substance: FLUOROURACIL
     Indication: GASTROOESOPHAGEAL CANCER
     Dosage: BOLUS
     Route: 041
     Dates: start: 20210722, end: 20210722
  5. AMIODARONE [Concomitant]
     Active Substance: AMIODARONE
     Dates: start: 202106, end: 20210803
  6. PEMBROLIZUMAB. [Suspect]
     Active Substance: PEMBROLIZUMAB
     Indication: GASTROOESOPHAGEAL CANCER
     Route: 041
     Dates: start: 20210722, end: 20210722
  7. LEUCOVORIN. [Suspect]
     Active Substance: LEUCOVORIN
     Indication: GASTROOESOPHAGEAL CANCER
     Route: 041
     Dates: start: 20210722, end: 20210722
  8. LEVOTHYROX [Concomitant]
     Active Substance: LEVOTHYROXINE
     Dates: start: 202106, end: 20210801
  9. OXALIPLATIN. [Suspect]
     Active Substance: OXALIPLATIN
     Indication: GASTROOESOPHAGEAL CANCER
     Route: 041
     Dates: start: 20210722, end: 20210722

REACTIONS (1)
  - Gastric perforation [Fatal]

NARRATIVE: CASE EVENT DATE: 20210730
